FAERS Safety Report 20176361 (Version 1)
Quarter: 2021Q4

REPORT INFORMATION
  Report Type: Spontaneous
  Country: US (occurrence: US)
  Receive Date: 20211213
  Receipt Date: 20211213
  Transmission Date: 20220303
  Serious: No
  Sender: FDA-Public Use
  Company Number: US-009507513-2112USA000213

PATIENT
  Age: 24 Year
  Sex: Male

DRUGS (1)
  1. INVANZ [Suspect]
     Active Substance: ERTAPENEM SODIUM
     Indication: Bacterial infection
     Dosage: 1 GRAM, QD FOR ONE MONTH
     Route: 042

REACTIONS (2)
  - Product use in unapproved indication [Unknown]
  - Product use issue [Unknown]
